FAERS Safety Report 22272778 (Version 2)
Quarter: 2024Q3

REPORT INFORMATION
  Report Type: Spontaneous
  Country: US (occurrence: US)
  Receive Date: 20230502
  Receipt Date: 20240830
  Transmission Date: 20241017
  Serious: No
  Sender: CIPLA
  Company Number: US-CIPLA LTD.-2023US01470

PATIENT

DRUGS (3)
  1. SAJAZIR [Suspect]
     Active Substance: ICATIBANT ACETATE
     Indication: Complement factor abnormal
     Dosage: 30/3 MG / ML, PRN (AS NEEDED)
     Route: 058
     Dates: start: 20230301
  2. SAJAZIR [Suspect]
     Active Substance: ICATIBANT ACETATE
     Indication: Rhinitis
     Dosage: 30 MILLIGRAM, PRN
     Route: 058
     Dates: start: 20230512
  3. SAJAZIR [Suspect]
     Active Substance: ICATIBANT ACETATE
     Dosage: 30 MILLIGRAM, PRN
     Route: 058
     Dates: start: 20230606

REACTIONS (4)
  - Product administered by wrong person [Unknown]
  - Hereditary angioedema [Unknown]
  - Off label use [Unknown]
  - Injection site inflammation [Unknown]

NARRATIVE: CASE EVENT DATE: 20230301
